FAERS Safety Report 5083032-2 (Version None)
Quarter: 2006Q3

REPORT INFORMATION
  Report Type: 
  Country: None (occurrence: None)
  Receive Date: 20060814
  Receipt Date: 20060728
  Transmission Date: 20061208
  Serious: Yes (Disabling)
  Sender: FDA-Public Use
  Company Number: BR-2006-011658

PATIENT
  Age: 61 Year
  Sex: Male

DRUGS (1)
  1. BETAFERON (INTERFERON BETA -1B)INJECTION, 250?G [Suspect]
     Indication: MULTIPLE SCLEROSIS
     Dosage: 1 ML, EVERY 2D, SUBCUTANEOUS
     Route: 058
     Dates: start: 20060301

REACTIONS (3)
  - ABASIA [None]
  - FALL [None]
  - INJECTION SITE MASS [None]
